FAERS Safety Report 13555460 (Version 4)
Quarter: 2023Q2

REPORT INFORMATION
  Report Type: Other
  Country: US (occurrence: None)
  Receive Date: 20170517
  Receipt Date: 20230420
  Transmission Date: 20230721
  Serious: Yes (Other)
  Sender: FDA-Public Use
  Company Number: US-ROCHE-1933456

PATIENT
  Age: 56 Year
  Sex: Male

DRUGS (2)
  1. OCREVUS [Suspect]
     Active Substance: OCRELIZUMAB
     Indication: Relapsing multiple sclerosis
     Route: 065
     Dates: start: 20170503
  2. OCREVUS [Suspect]
     Active Substance: OCRELIZUMAB
     Indication: Multiple sclerosis

REACTIONS (12)
  - Cerebral disorder [Unknown]
  - Nausea [Unknown]
  - Fatigue [Unknown]
  - Fatigue [Unknown]
  - Asthenia [Unknown]
  - Ear infection [Unknown]
  - Hyperhidrosis [Unknown]
  - Mucosal dryness [Unknown]
  - Dysphonia [Unknown]
  - Abdominal pain upper [Unknown]
  - Headache [Not Recovered/Not Resolved]
  - Gastric disorder [Unknown]

NARRATIVE: CASE EVENT DATE: 20170503
